FAERS Safety Report 7376964-3 (Version None)
Quarter: 2011Q1

REPORT INFORMATION
  Report Type: 
  Country: None (occurrence: None)
  Receive Date: 20110328
  Receipt Date: 20110317
  Transmission Date: 20110831
  Serious: Yes (Hospitalization)
  Sender: FDA-Public Use
  Company Number: US-BIOGENIDEC-2007BI010163

PATIENT
  Age: 43 Year
  Sex: Male

DRUGS (2)
  1. AVONEX [Suspect]
     Indication: MULTIPLE SCLEROSIS
     Route: 030
     Dates: start: 20050621, end: 20060728
  2. AVONEX [Suspect]
     Route: 030
     Dates: start: 20070921

REACTIONS (13)
  - DEAFNESS [None]
  - NEUROFIBROMA [None]
  - MEMORY IMPAIRMENT [None]
  - DEEP VEIN THROMBOSIS [None]
  - CEREBRAL ATROPHY [None]
  - ATAXIA [None]
  - JOINT SWELLING [None]
  - ANXIETY [None]
  - INTERVERTEBRAL DISC PROTRUSION [None]
  - MULTIPLE SCLEROSIS [None]
  - OEDEMA PERIPHERAL [None]
  - CONSTIPATION [None]
  - PAIN IN EXTREMITY [None]
